FAERS Safety Report 7916038-3 (Version None)
Quarter: 2011Q4

REPORT INFORMATION
  Report Type: 
  Country: None (occurrence: None)
  Receive Date: 20111115
  Receipt Date: 20111108
  Transmission Date: 20120403
  Serious: Yes (Hospitalization, Other)
  Sender: FDA-Public Use
  Company Number: SE-BRISTOL-MYERS SQUIBB COMPANY-15829583

PATIENT
  Age: 71 Year
  Sex: Male

DRUGS (7)
  1. CETUXIMAB [Suspect]
     Indication: NON-SMALL CELL LUNG CANCER
     Dosage: LAST INFUSION DATE:13-JUL-2006.
     Route: 042
  2. WARFARIN SODIUM [Concomitant]
  3. CARVEDILOL [Concomitant]
  4. PREDNISOLONE [Concomitant]
  5. CISPLATIN [Suspect]
     Indication: NON-SMALL CELL LUNG CANCER
     Dosage: LAST INFUSION DATE:13-JUL-2006.
     Route: 042
     Dates: start: 20060713
  6. TAXOTERE [Suspect]
     Indication: NON-SMALL CELL LUNG CANCER
     Dosage: LAST INFUSION DATE:13-JUL-2006.
     Route: 042
     Dates: start: 20060713
  7. ASPIRIN [Concomitant]

REACTIONS (1)
  - SYNCOPE [None]
